FAERS Safety Report 8188680-9 (Version None)
Quarter: 2012Q1

REPORT INFORMATION
  Report Type: 
  Country: None (occurrence: None)
  Receive Date: 20120306
  Receipt Date: 20120223
  Transmission Date: 20120608
  Serious: Yes (Hospitalization)
  Sender: FDA-Public Use
  Company Number: DE-ELI_LILLY_AND_COMPANY-DE201202004744

PATIENT
  Age: 78 Year
  Sex: Male

DRUGS (3)
  1. BETA BLOCKING AGENTS [Concomitant]
  2. FORTEO [Suspect]
     Dosage: UNK, QD
     Route: 058
     Dates: start: 20120201
  3. FORTEO [Suspect]
     Indication: OSTEOPOROSIS
     Dosage: UNK, QD
     Route: 058
     Dates: start: 20100826, end: 20120201

REACTIONS (4)
  - INFLUENZA LIKE ILLNESS [None]
  - HEADACHE [None]
  - PYREXIA [None]
  - SPINAL COLUMN STENOSIS [None]
